FAERS Safety Report 8151049-7 (Version None)
Quarter: 2012Q1

REPORT INFORMATION
  Report Type: 
  Country: None (occurrence: None)
  Receive Date: 20120220
  Receipt Date: 20120213
  Transmission Date: 20120608
  Serious: Yes (Hospitalization)
  Sender: FDA-Public Use
  Company Number: DE-MERCK-1202DEU00054

PATIENT
  Age: 79 Year
  Sex: Male

DRUGS (1)
  1. TRUSOPT [Suspect]
     Indication: GLAUCOMA
     Route: 047
     Dates: start: 20040101

REACTIONS (4)
  - CATARACT [None]
  - VITREOUS OPACITIES [None]
  - SKELETAL INJURY [None]
  - OPTIC NERVE INJURY [None]
